FAERS Safety Report 9313706 (Version 2)
Quarter: 2013Q2

REPORT INFORMATION
  Report Type: Report from Study
  Country: DE (occurrence: DE)
  Receive Date: 20130529
  Receipt Date: 20130624
  Transmission Date: 20140414
  Serious: Yes (Hospitalization)
  Sender: FDA-Public Use
  Company Number: DE-AMGEN-DEUCT2013038019

PATIENT
  Age: 56 Year
  Sex: Male
  Weight: 150 kg

DRUGS (8)
  1. ETANERCEPT [Suspect]
     Indication: ANKYLOSING SPONDYLITIS
     Dosage: 50 MG, WEEKLY
     Dates: start: 20120112
  2. BETAVERT                           /00141802/ [Concomitant]
     Dosage: UNK
  3. METOHEXAL                          /00376902/ [Concomitant]
     Dosage: 95 MG, UNK
  4. FALITHROM [Concomitant]
     Dosage: UNK
  5. LORZAAR PLUS [Concomitant]
     Dosage: UNK
  6. PREDNISOLON                        /00016201/ [Concomitant]
     Indication: ANKYLOSING SPONDYLITIS
     Dosage: 5 MG, WEEKLY
     Dates: start: 1997
  7. METOHEXAL [Concomitant]
     Dosage: 95 MG, UNK
  8. PREDNISOLON [Concomitant]
     Indication: ANKYLOSING SPONDYLITIS
     Dosage: 5 MG, WEEKLY
     Dates: start: 1997

REACTIONS (1)
  - Nephrolithiasis [Recovered/Resolved]
